FAERS Safety Report 8849092 (Version 1)
Quarter: 2012Q4

REPORT INFORMATION
  Report Type: Spontaneous
  Country: US (occurrence: None)
  Receive Date: 20121017
  Receipt Date: 20121017
  Transmission Date: 20130627
  Serious: Yes (Disabling)
  Sender: FDA-Public Use
  Company Number: None

PATIENT
  Age: 29 Year
  Sex: Male
  Weight: 108.86 kg

DRUGS (1)
  1. ZYPREXA [Suspect]
     Dosage: once a day
     Dates: start: 20121001, end: 20121014

REACTIONS (1)
  - Spinal column stenosis [None]
